FAERS Safety Report 8053809-X (Version None)
Quarter: 2012Q1

REPORT INFORMATION
  Report Type: 
  Country: None (occurrence: None)
  Receive Date: 20120110
  Receipt Date: 20111226
  Transmission Date: 20120608
  Serious: Yes (Death, Other)
  Sender: FDA-Public Use
  Company Number: MPS1-1000621

PATIENT
  Age: 9 Year
  Sex: Male

DRUGS (1)
  1. ALDURAZYME [Suspect]
     Indication: MUCOPOLYSACCHARIDOSIS I
     Dosage: 1.2 MG/KG, EVERY 15 DAYS,INTRAVENOUS
     Route: 042
     Dates: start: 20080626

REACTIONS (2)
  - NEUROLOGICAL DECOMPENSATION [None]
  - BRONCHOPNEUMONIA [None]
